FAERS Safety Report 18414927 (Version 1)
Quarter: 2020Q4

REPORT INFORMATION
  Report Type: Spontaneous
  Country: US (occurrence: US)
  Receive Date: 20201022
  Receipt Date: 20201022
  Transmission Date: 20210114
  Serious: Yes (Other)
  Sender: FDA-Public Use
  Company Number: US-ALLERGAN-2039240US

PATIENT
  Sex: Male

DRUGS (1)
  1. REFRESH RELIEVA [Suspect]
     Active Substance: CARBOXYMETHYLCELLULOSE SODIUM\GLYCERIN
     Indication: DRY EYE
     Dosage: UNK
     Dates: start: 20201009

REACTIONS (4)
  - Eye irritation [Unknown]
  - Blindness unilateral [Unknown]
  - Lacrimation increased [Not Recovered/Not Resolved]
  - Abnormal sensation in eye [Not Recovered/Not Resolved]

NARRATIVE: CASE EVENT DATE: 20201009
